FAERS Safety Report 23560459 (Version 4)
Quarter: 2024Q4

REPORT INFORMATION
  Report Type: Spontaneous
  Country: US (occurrence: US)
  Receive Date: 20240223
  Receipt Date: 20241128
  Transmission Date: 20250114
  Serious: No
  Sender: KARYOPHARM THERAPEUTICS
  Company Number: US-KARYOPHARM-2024KPT000453

PATIENT

DRUGS (3)
  1. XPOVIO [Suspect]
     Active Substance: SELINEXOR
     Indication: Plasma cell myeloma
     Dosage: 40 MG, ONCE WEEKLY,
     Route: 048
     Dates: start: 20240204
  2. XPOVIO [Suspect]
     Active Substance: SELINEXOR
     Dosage: 40 MG, ONCE WEEKLY, 3 WEEKS ON, 1 WEEK OFF
     Route: 048
     Dates: start: 20240325
  3. POMALYST [Concomitant]
     Active Substance: POMALIDOMIDE

REACTIONS (4)
  - Malaise [Not Recovered/Not Resolved]
  - Diarrhoea [Unknown]
  - Nausea [Not Recovered/Not Resolved]
  - Fatigue [Unknown]

NARRATIVE: CASE EVENT DATE: 20240204
